FAERS Safety Report 6248054-4 (Version None)
Quarter: 2009Q2

REPORT INFORMATION
  Report Type: 
  Country: None (occurrence: None)
  Receive Date: 20090626
  Receipt Date: 20090623
  Transmission Date: 20091009
  Serious: Yes (Other)
  Sender: FDA-Public Use
  Company Number: US-JNJCH-2009015237

PATIENT
  Age: 57 Year
  Sex: Male
  Weight: 72.6 kg

DRUGS (1)
  1. VISINE-A [Suspect]
     Indication: OCULAR HYPERAEMIA
     Dosage: TEXT:1 OR 2 DROPS IN EACH EYE 1 X DAY
     Route: 047

REACTIONS (1)
  - APPLICATION SITE BURN [None]
